FAERS Safety Report 13235538 (Version 1)
Quarter: 2017Q1

REPORT INFORMATION
  Report Type: Spontaneous
  Country: US (occurrence: US)
  Receive Date: 20170215
  Receipt Date: 20170215
  Transmission Date: 20170428
  Serious: No
  Sender: FDA-Public Use
  Company Number: US-MISSION PHARMACAL COMPANY-1063110

PATIENT
  Age: 19 Year
  Sex: Female

DRUGS (1)
  1. THIOLA [Suspect]
     Active Substance: TIOPRONIN
     Indication: CYSTINURIA
     Route: 065
     Dates: start: 20140927

REACTIONS (4)
  - Pain [Unknown]
  - Drug ineffective [Unknown]
  - Peripheral sensory neuropathy [Unknown]
  - Drug dose omission [Unknown]
